FAERS Safety Report 25721420 (Version 1)
Quarter: 2025Q3

REPORT INFORMATION
  Report Type: Report from Study
  Country: JP (occurrence: JP)
  Receive Date: 20250825
  Receipt Date: 20250825
  Transmission Date: 20251020
  Serious: Yes (Death)
  Sender: EISAI
  Company Number: JP-Eisai-EC-2025-195480

PATIENT

DRUGS (1)
  1. LEQEMBI [Suspect]
     Active Substance: LECANEMAB-IRMB
     Indication: Dementia Alzheimer^s type
     Route: 042

REACTIONS (1)
  - Amyotrophic lateral sclerosis [Fatal]

NARRATIVE: CASE EVENT DATE: 20250801
